FAERS Safety Report 8889295 (Version 1)
Quarter: 2012Q4

REPORT INFORMATION
  Report Type: 
  Country: BR (occurrence: BR)
  Receive Date: 20121106
  Receipt Date: 20121106
  Transmission Date: 20130627
  Serious: Yes (Other)
  Sender: FDA-Public Use
  Company Number: BR-PFIZER INC-2012270651

PATIENT
  Age: 63 Year
  Sex: Female
  Weight: 63 kg

DRUGS (1)
  1. ATORVASTATIN CALCIUM [Suspect]
     Indication: BLOOD CHOLESTEROL INCREASED
     Dosage: 10 mg, one tablet a day after dinner
     Route: 048
     Dates: start: 201208, end: 20121026

REACTIONS (5)
  - Monoplegia [Unknown]
  - Myalgia [Recovered/Resolved]
  - Muscular weakness [Unknown]
  - Arthralgia [Recovered/Resolved]
  - Anxiety [Unknown]
